FAERS Safety Report 5341540-0 (Version None)
Quarter: 2007Q2

REPORT INFORMATION
  Report Type: 
  Country: None (occurrence: None)
  Receive Date: 20070529
  Receipt Date: 20070529
  Transmission Date: 20071010
  Serious: Yes (Disabling, Other)
  Sender: FDA-Public Use
  Company Number: None

PATIENT
  Sex: Female
  Weight: 68.0396 kg

DRUGS (2)
  1. LEVAQUIN [Suspect]
     Indication: URINARY TRACT INFECTION
     Dosage: 2 X DAILY 5 DAYS
     Dates: start: 20070119, end: 20070123
  2. LEVAQUIN [Suspect]
     Indication: URINARY TRACT INFECTION
     Dosage: 2 X DAILY 5 DAYS
     Dates: start: 20070130, end: 20070203

REACTIONS (7)
  - ARTHRALGIA [None]
  - BURNING SENSATION [None]
  - MYALGIA [None]
  - OEDEMA PERIPHERAL [None]
  - PAIN [None]
  - SLEEP DISORDER [None]
  - TENDON PAIN [None]
